FAERS Safety Report 10402719 (Version 1)
Quarter: 2014Q3

REPORT INFORMATION
  Report Type: Spontaneous
  Country: US (occurrence: None)
  Receive Date: 20140821
  Receipt Date: 20140821
  Transmission Date: 20150326
  Serious: Yes (Other)
  Sender: FDA-Public Use
  Company Number: None

PATIENT
  Sex: Female

DRUGS (2)
  1. SYSTANE [Suspect]
     Active Substance: HYPROMELLOSE 2910 (4000 MPA.S)
     Indication: OPEN ANGLE GLAUCOMA
     Dosage: 1 DROP OU QID
     Dates: start: 20131016
  2. XALATAN [Suspect]
     Active Substance: LATANOPROST
     Indication: OPEN ANGLE GLAUCOMA
     Dosage: 1 DROP OU QHS
     Dates: start: 20130628

REACTIONS (4)
  - Vision blurred [None]
  - Hypersensitivity [None]
  - Pruritus [None]
  - Product substitution issue [None]
